FAERS Safety Report 9958544 (Version 1)
Quarter: 2014Q1

REPORT INFORMATION
  Report Type: Spontaneous
  Country: US (occurrence: US)
  Receive Date: 20140304
  Receipt Date: 20140304
  Transmission Date: 20141002
  Serious: Yes (Hospitalization, Other)
  Sender: FDA-Public Use
  Company Number: 2014SP000845

PATIENT
  Age: 29 Year
  Sex: Female

DRUGS (4)
  1. CISPLATIN [Suspect]
     Indication: HODGKIN^S DISEASE
  2. ETOPOSIDE [Concomitant]
  3. METHYLPREDNISOLONE [Concomitant]
  4. CYTARABINE [Concomitant]

REACTIONS (7)
  - Sinus bradycardia [Recovering/Resolving]
  - Cholecystitis [Unknown]
  - Abdominal pain [Unknown]
  - Nausea [Unknown]
  - Vomiting [Unknown]
  - Hypokalaemia [Unknown]
  - Hypomagnesaemia [Unknown]
